FAERS Safety Report 7288819 (Version 2)
Quarter: 2014Q3

REPORT INFORMATION
  Report Type: Spontaneous
  Country: US (occurrence: None)
  Receive Date: 20100202
  Receipt Date: 20140910
  Transmission Date: 20150326
  Serious: Yes (Other)
  Sender: FDA-Public Use
  Company Number: 2010S1000306

PATIENT
  Age: 40 Year
  Sex: Male
  Weight: 97 kg

DRUGS (4)
  1. PHOSPHO-SODA [Suspect]
     Active Substance: SODIUM PHOSPHATE, DIBASIC\SODIUM PHOSPHATE, MONOBASIC
     Indication: SCAN WITH CONTRAST
     Dosage: PO
     Route: 048
     Dates: start: 20030310, end: 20030310
  2. PRILOSEC [Concomitant]
     Active Substance: OMEPRAZOLE MAGNESIUM
  3. TYLENOL [Concomitant]
     Active Substance: ACETAMINOPHEN
  4. IBUPROFEN. [Concomitant]
     Active Substance: IBUPROFEN

REACTIONS (3)
  - Renal failure [None]
  - Hyperparathyroidism [None]
  - Acute phosphate nephropathy [None]

NARRATIVE: CASE EVENT DATE: 20041222
